FAERS Safety Report 25760124 (Version 1)
Quarter: 2025Q3

REPORT INFORMATION
  Report Type: Spontaneous
  Country: EU (occurrence: EU)
  Receive Date: 20250904
  Receipt Date: 20250904
  Transmission Date: 20251021
  Serious: Yes (Hospitalization, Other)
  Sender: MERCK SHARP & DOHME LLC
  Company Number: EU-009507513-2323511

PATIENT
  Age: 62 Year

DRUGS (1)
  1. PEMBROLIZUMAB [Suspect]
     Active Substance: PEMBROLIZUMAB
     Indication: Lung adenocarcinoma stage II
     Route: 042
     Dates: start: 2021

REACTIONS (14)
  - Coma [Unknown]
  - West Nile viral infection [Unknown]
  - Hydrocephalus [Unknown]
  - Pneumonia aspiration [Unknown]
  - Mechanical ventilation complication [Unknown]
  - Pulmonary embolism [Unknown]
  - Paraplegia [Unknown]
  - Eyelid ptosis [Unknown]
  - Bradyphrenia [Unknown]
  - Dyslalia [Unknown]
  - Personality change due to a general medical condition [Unknown]
  - Strabismus [Unknown]
  - Malignant neoplasm progression [Unknown]
  - Brain neoplasm [Unknown]

NARRATIVE: CASE EVENT DATE: 20221101
